FAERS Safety Report 6249060-6 (Version None)
Quarter: 2009Q2

REPORT INFORMATION
  Report Type: 
  Country: None (occurrence: None)
  Receive Date: 20090629
  Receipt Date: 20090617
  Transmission Date: 20091009
  Serious: Yes (Other)
  Sender: FDA-Public Use
  Company Number: US-AVENTIS-200915406US

PATIENT
  Sex: Female
  Weight: 66.22 kg

DRUGS (7)
  1. LANTUS [Suspect]
     Indication: TYPE 2 DIABETES MELLITUS
     Route: 058
  2. LISINOPRIL [Concomitant]
  3. METFORMIN [Concomitant]
  4. BUPROPION [Concomitant]
  5. OMEPRAZOLE [Concomitant]
  6. CELEBREX [Concomitant]
     Dosage: DOSE: UNK
  7. UNKNOWN DRUG [Concomitant]
     Dosage: DOSE: UNK

REACTIONS (2)
  - DEVICE MALFUNCTION [None]
  - WEIGHT DECREASED [None]
